FAERS Safety Report 9215139 (Version 2)
Quarter: 2013Q3

REPORT INFORMATION
  Report Type: Report from Study
  Country: US (occurrence: US)
  Receive Date: 20130405
  Receipt Date: 20130718
  Transmission Date: 20140515
  Serious: Yes (Hospitalization, Other)
  Sender: FDA-Public Use
  Company Number: US-ABBOTT-13P-163-1070396-00

PATIENT
  Age: 69 Year
  Sex: Female
  Weight: 62.65 kg

DRUGS (4)
  1. HUMIRA [Suspect]
     Indication: CROHN^S DISEASE
  2. LOMOTIL [Concomitant]
     Indication: ANTIDIARRHOEAL SUPPORTIVE CARE
  3. IMODIUM [Concomitant]
     Indication: ANTIDIARRHOEAL SUPPORTIVE CARE
  4. COLESTIPOL [Concomitant]
     Indication: ANTIDIARRHOEAL SUPPORTIVE CARE

REACTIONS (11)
  - Intestinal obstruction [Recovered/Resolved]
  - Abdominal pain [Recovered/Resolved]
  - Vomiting [Recovered/Resolved]
  - Blood magnesium decreased [Recovered/Resolved]
  - Blood potassium decreased [Recovered/Resolved]
  - Crohn^s disease [Unknown]
  - Drug ineffective [Unknown]
  - Enteritis [Unknown]
  - Fatigue [Unknown]
  - Chills [Unknown]
  - Influenza like illness [Unknown]
